FAERS Safety Report 6167412-X (Version None)
Quarter: 2009Q2

REPORT INFORMATION
  Report Type: 
  Country: None (occurrence: None)
  Receive Date: 20090424
  Receipt Date: 20090420
  Transmission Date: 20091009
  Serious: No
  Sender: FDA-Public Use
  Company Number: DE-AVENTIS-200910791DE

PATIENT
  Age: 34 Year
  Sex: Male

DRUGS (1)
  1. ARAVA [Suspect]
     Route: 048
     Dates: start: 20050101, end: 20071101

REACTIONS (1)
  - DRUG EXPOSURE BEFORE PREGNANCY [None]
